FAERS Safety Report 14154293 (Version 2)
Quarter: 2017Q4

REPORT INFORMATION
  Report Type: Spontaneous
  Country: IT (occurrence: IT)
  Receive Date: 20171102
  Receipt Date: 20171113
  Transmission Date: 20180321
  Serious: Yes (Hospitalization)
  Sender: FDA-Public Use
  Company Number: IT-PFIZER INC-2017471275

PATIENT
  Age: 71 Year
  Sex: Male

DRUGS (4)
  1. REAPTAN [Suspect]
     Active Substance: AMLODIPINE BESYLATE
     Dosage: 28 DF, SINGLE
     Route: 048
     Dates: start: 20171019, end: 20171019
  2. XANAX [Suspect]
     Active Substance: ALPRAZOLAM
     Dosage: 20 ML, SINGLE
     Route: 048
     Dates: start: 20171019, end: 20171019
  3. QUETIAPINE. [Concomitant]
     Active Substance: QUETIAPINE
     Dosage: UNK
  4. CYMBALTA [Concomitant]
     Active Substance: DULOXETINE HYDROCHLORIDE
     Dosage: UNK

REACTIONS (5)
  - Drug abuse [Recovered/Resolved]
  - Headache [Recovered/Resolved]
  - Intentional self-injury [Recovered/Resolved]
  - Diplopia [Recovered/Resolved]
  - Aphasia [Recovered/Resolved]

NARRATIVE: CASE EVENT DATE: 20171019
